FAERS Safety Report 9805389 (Version 1)
Quarter: 2014Q1

REPORT INFORMATION
  Report Type: Spontaneous
  Country: US (occurrence: US)
  Receive Date: 20140109
  Receipt Date: 20140109
  Transmission Date: 20141002
  Serious: No
  Sender: FDA-Public Use
  Company Number: US-PFIZER INC-2014003884

PATIENT
  Age: 61 Year
  Sex: Female
  Weight: 59 kg

DRUGS (2)
  1. LEVOXYL [Suspect]
     Indication: THYROID HORMONE REPLACEMENT THERAPY
     Dosage: UNK
  2. ALBUTEROL [Concomitant]
     Indication: ASTHMA
     Dosage: UNK, AS NEEDED

REACTIONS (2)
  - Thyroid function test abnormal [Unknown]
  - Incoherent [Unknown]
